FAERS Safety Report 8364090-6 (Version None)
Quarter: 2012Q1

REPORT INFORMATION
  Report Type: 
  Country: None (occurrence: None)
  Receive Date: 20120323
  Receipt Date: 20111222
  Transmission Date: 20120608
  Serious: Yes (Hospitalization, Other)
  Sender: FDA-Public Use
  Company Number: 163-21880-11123448

PATIENT
  Age: 71 Year
  Sex: Male

DRUGS (10)
  1. ISONIAZID [Concomitant]
  2. ALPRAZOLAM [Concomitant]
  3. REVLIMID [Suspect]
     Indication: MULTIPLE MYELOMA
     Dosage: 10 MG, DAILY 21/28, PO, NP
     Route: 048
     Dates: start: 20110101
  4. SIMVASTATIN [Concomitant]
  5. HYDROMOPHONE (HYDROMORPHONE) [Concomitant]
  6. CARVEDILOL [Concomitant]
  7. PYRIDOXINE HYDROCHLORIDE [Concomitant]
  8. CYANOCOBALAMIN [Concomitant]
  9. LISINOPRIL [Concomitant]
  10. FENTANYL [Concomitant]

REACTIONS (2)
  - CHEST PAIN [None]
  - DIZZINESS [None]
